FAERS Safety Report 6606538-0 (Version None)
Quarter: 2010Q1

REPORT INFORMATION
  Report Type: 
  Country: None (occurrence: None)
  Receive Date: 20100226
  Receipt Date: 20100225
  Transmission Date: 20100710
  Serious: Yes (Life-Threatening, Hospitalization)
  Sender: FDA-Public Use
  Company Number: PHHO2010BE03104

PATIENT
  Sex: Male
  Weight: 73 kg

DRUGS (2)
  1. CERTICAN [Suspect]
     Indication: LIVER TRANSPLANT
     Dosage: 2MG/DAY
     Route: 048
     Dates: start: 20080812
  2. TACROLIMUS [Suspect]
     Indication: LIVER TRANSPLANT
     Dosage: 2MG/DAY
     Route: 048
     Dates: start: 20080716

REACTIONS (4)
  - ANGINA PECTORIS [None]
  - ARTERIOSCLEROSIS CORONARY ARTERY [None]
  - CONCOMITANT DISEASE PROGRESSION [None]
  - CORONARY ARTERIAL STENT INSERTION [None]
